FAERS Safety Report 6052291-1 (Version None)
Quarter: 2009Q1

REPORT INFORMATION
  Report Type: 
  Country: None (occurrence: None)
  Receive Date: 20090121
  Receipt Date: 20090113
  Transmission Date: 20090719
  Serious: Yes (Other)
  Sender: FDA-Public Use
  Company Number: CERZ-1000482

PATIENT
  Age: 68 Year
  Sex: Male
  Weight: 68 kg

DRUGS (1)
  1. CEREZYME [Suspect]
     Indication: GAUCHER'S DISEASE
     Dosage: 4800 U, Q2W, INTRAVENOUS
     Route: 042
     Dates: start: 19990731

REACTIONS (3)
  - FALL [None]
  - HEPATIC NEOPLASM MALIGNANT [None]
  - JOINT INJURY [None]
